FAERS Safety Report 4754196-2 (Version None)
Quarter: 2005Q3

REPORT INFORMATION
  Report Type: 
  Country: None (occurrence: None)
  Receive Date: 20050826
  Receipt Date: 20050810
  Transmission Date: 20060218
  Serious: Yes (Death)
  Sender: FDA-Public Use
  Company Number: 200512572GDS

PATIENT
  Age: 78 Year
  Sex: Female

DRUGS (6)
  1. APROTININ [Suspect]
     Indication: HAEMORRHAGE
     Dosage: 2000 KIU, ONCE, INTRAVENOUS; 500 KIU, Q1HR, INTRAVENOUS
     Route: 042
  2. FENTANYL [Concomitant]
  3. MIDAZOLAM HCL [Concomitant]
  4. PANCURONIUM [Concomitant]
  5. ISOFLURANE [Concomitant]
  6. HEPARIN [Concomitant]

REACTIONS (5)
  - AORTIC THROMBOSIS [None]
  - CARDIAC ARREST [None]
  - HAEMORRHAGE [None]
  - OPERATIVE HAEMORRHAGE [None]
  - POST PROCEDURAL HAEMORRHAGE [None]
